FAERS Safety Report 10204398 (Version 1)
Quarter: 2014Q2

REPORT INFORMATION
  Report Type: Spontaneous
  Country: US (occurrence: None)
  Receive Date: 20140527
  Receipt Date: 20140527
  Transmission Date: 20141212
  Serious: No
  Sender: FDA-Public Use
  Company Number: None

PATIENT
  Age: 55 Year
  Sex: Female

DRUGS (4)
  1. AMLODIPINE [Suspect]
     Indication: HYPERTENSION
     Dates: start: 20121108, end: 20121123
  2. LEVAQUIN [Suspect]
     Indication: SEPSIS
     Dates: start: 20121024, end: 20121031
  3. MEROPENEM [Concomitant]
  4. VANCOMYCIN [Concomitant]

REACTIONS (12)
  - Rash pruritic [None]
  - Rash erythematous [None]
  - Pyrexia [None]
  - Staphylococcus test positive [None]
  - Eosinophilia [None]
  - Drug reaction with eosinophilia and systemic symptoms [None]
  - Drug-induced liver injury [None]
  - Cholestasis [None]
  - Hepatic failure [None]
  - Dermatitis [None]
  - Drug eruption [None]
  - Hepatic steatosis [None]
